FAERS Safety Report 4687521-1 (Version None)
Quarter: 2005Q2

REPORT INFORMATION
  Report Type: 
  Country: None (occurrence: None)
  Receive Date: 20050608
  Receipt Date: 20050608
  Transmission Date: 20051028
  Serious: Yes (Other)
  Sender: FDA-Public Use
  Company Number: None

PATIENT
  Age: 69 Year
  Sex: Male

DRUGS (1)
  1. IODIXANOL  270MG - IODINE- / ML [Suspect]
     Indication: CATHETERISATION CARDIAC
     Dosage: 80ML      INTRAVENOU
     Route: 042
     Dates: start: 20050224, end: 20050225

REACTIONS (2)
  - ANGIONEUROTIC OEDEMA [None]
  - POST PROCEDURAL COMPLICATION [None]
